FAERS Safety Report 20626457 (Version 3)
Quarter: 2022Q4

REPORT INFORMATION
  Report Type: Report from Study
  Country: US (occurrence: US)
  Receive Date: 20220323
  Receipt Date: 20221228
  Transmission Date: 20230113
  Serious: Yes (Other)
  Sender: FDA-Public Use
  Company Number: US-002147023-NVSC2022US066104

PATIENT
  Sex: Female

DRUGS (2)
  1. ENTRESTO [Suspect]
     Active Substance: SACUBITRIL\VALSARTAN
     Indication: Product used for unknown indication
     Dosage: UNK UNK, QD
     Route: 048
     Dates: start: 2019, end: 2019
  2. ENTRESTO [Suspect]
     Active Substance: SACUBITRIL\VALSARTAN
     Dosage: UNK, BID
     Route: 065

REACTIONS (4)
  - Cardiac failure [Unknown]
  - Hypotension [Recovered/Resolved]
  - Drug ineffective [Unknown]
  - Inappropriate schedule of product administration [Unknown]
